FAERS Safety Report 15644212 (Version 1)
Quarter: 2018Q4

REPORT INFORMATION
  Report Type: Spontaneous
  Country: US (occurrence: US)
  Receive Date: 20181115
  Receipt Date: 20181115
  Transmission Date: 20190205
  Serious: Yes (Death)
  Sender: FDA-Public Use
  Company Number: None

PATIENT
  Age: 46 Year
  Sex: Female
  Weight: 60.75 kg

DRUGS (22)
  1. IBRANCE [Suspect]
     Active Substance: PALBOCICLIB
     Indication: BREAST CANCER
     Dosage: ?          OTHER FREQUENCY:3 WKS ON, 1 WK OFF;?
     Route: 048
     Dates: start: 20180803
  2. VENOFER [Concomitant]
     Active Substance: IRON SUCROSE
  3. FENTANYL. [Concomitant]
     Active Substance: FENTANYL
  4. XGEVA [Concomitant]
     Active Substance: DENOSUMAB
  5. NIACIN. [Concomitant]
     Active Substance: NIACIN
  6. VITAMIN D [Concomitant]
     Active Substance: CHOLECALCIFEROL
  7. VENOFER [Concomitant]
     Active Substance: IRON SUCROSE
  8. FENTANYL. [Concomitant]
     Active Substance: FENTANYL
  9. MULTIVITAMIN [Concomitant]
     Active Substance: VITAMINS
  10. GRANIX [Concomitant]
     Active Substance: TBO-FILGRASTIM
  11. GRANIX [Concomitant]
     Active Substance: TBO-FILGRASTIM
  12. OXYCODONE [Concomitant]
     Active Substance: OXYCODONE
  13. ARIMIDEX [Concomitant]
     Active Substance: ANASTROZOLE
  14. ZOLADEX [Concomitant]
     Active Substance: GOSERELIN ACETATE
  15. VITAMIN D [Concomitant]
     Active Substance: CHOLECALCIFEROL
  16. PROCRIT [Concomitant]
     Active Substance: ERYTHROPOIETIN
  17. NIACIN. [Concomitant]
     Active Substance: NIACIN
  18. OXYCODONE [Concomitant]
     Active Substance: OXYCODONE
  19. ARIMIDEX [Concomitant]
     Active Substance: ANASTROZOLE
  20. XGEVA [Concomitant]
     Active Substance: DENOSUMAB
  21. PROCRIT [Concomitant]
     Active Substance: ERYTHROPOIETIN
  22. ZOLADEX [Concomitant]
     Active Substance: GOSERELIN ACETATE

REACTIONS (2)
  - Breast cancer [None]
  - Disease progression [None]
